FAERS Safety Report 9701209 (Version 1)
Quarter: 2013Q4

REPORT INFORMATION
  Report Type: Spontaneous
  Country: US (occurrence: US)
  Receive Date: 20131121
  Receipt Date: 20131121
  Transmission Date: 20140711
  Serious: No
  Sender: FDA-Public Use
  Company Number: US-GILEAD-2008-0016023

PATIENT
  Sex: Female
  Weight: 134.26 kg

DRUGS (10)
  1. LETAIRIS [Suspect]
     Indication: PULMONARY ARTERIAL HYPERTENSION
     Route: 048
     Dates: start: 20071009
  2. LASIX [Concomitant]
     Route: 048
  3. COUMADIN [Concomitant]
     Dosage: UD
     Route: 048
  4. DILTIA [Concomitant]
     Route: 048
  5. VALIUM [Concomitant]
     Dosage: UD
     Route: 048
  6. LIPITOR [Concomitant]
     Route: 048
  7. GLIPIZIDE [Concomitant]
     Route: 048
  8. SPIRIVA [Concomitant]
     Route: 055
  9. PREVACID [Concomitant]
     Route: 048
  10. POTASSIUM CHLORIDE [Concomitant]
     Route: 048

REACTIONS (1)
  - Dry skin [Unknown]
